FAERS Safety Report 9331018 (Version 3)
Quarter: 2013Q3

REPORT INFORMATION
  Report Type: Report from Study
  Country: JP (occurrence: JP)
  Receive Date: 20130605
  Receipt Date: 20130725
  Transmission Date: 20140515
  Serious: Yes (Other)
  Sender: FDA-Public Use
  Company Number: JP-ELI_LILLY_AND_COMPANY-JP201305007407

PATIENT
  Age: 88 Year
  Sex: Female

DRUGS (2)
  1. TERIPARATIDE [Suspect]
     Indication: OSTEOPOROSIS
     Dosage: 20 UG, QD
     Route: 058
     Dates: start: 20110802, end: 20130419
  2. LIMAPROST [Concomitant]
     Indication: LUMBAR SPINAL STENOSIS
     Dosage: UNK

REACTIONS (2)
  - Breast cancer [Unknown]
  - Malaise [Not Recovered/Not Resolved]
